FAERS Safety Report 5604868-2 (Version None)
Quarter: 2008Q1

REPORT INFORMATION
  Report Type: 
  Country: None (occurrence: None)
  Receive Date: 20080111
  Receipt Date: 20070914
  Transmission Date: 20080703
  Serious: Yes (Other)
  Sender: FDA-Public Use
  Company Number: HQWYE052107OCT03

PATIENT
  Age: 42 Year
  Sex: Female

DRUGS (1)
  1. PREMPHASE (PREMARIN;CYCRIN 14/14) [Suspect]
     Dosage: 0.625MG/5MG DAILY, ORAL
     Route: 048
     Dates: start: 20000723, end: 20000810

REACTIONS (1)
  - CEREBROVASCULAR ACCIDENT [None]
